FAERS Safety Report 19560904 (Version 3)
Quarter: 2021Q3

REPORT INFORMATION
  Report Type: Report from Study
  Country: US (occurrence: US)
  Receive Date: 20210716
  Receipt Date: 20210728
  Transmission Date: 20211014
  Serious: Yes (Other)
  Sender: FDA-Public Use
  Company Number: US-GLAXOSMITHKLINE-US2021AMR100123

PATIENT
  Age: 64 Year
  Sex: Male

DRUGS (1)
  1. BELANTAMAB MAFODOTIN. [Suspect]
     Active Substance: BELANTAMAB MAFODOTIN
     Indication: PRODUCT USED FOR UNKNOWN INDICATION
     Dosage: 2.5 MG/KG Q21D
     Route: 042
     Dates: start: 20210325, end: 20210415

REACTIONS (6)
  - Corneal disorder [Recovered/Resolved]
  - Keratopathy [Recovered/Resolved]
  - Cataract [Recovered/Resolved]
  - Plasma cell myeloma [Unknown]
  - Visual acuity reduced [Recovered/Resolved]
  - Dry eye [Recovered/Resolved]

NARRATIVE: CASE EVENT DATE: 20210527
